FAERS Safety Report 24645432 (Version 1)
Quarter: 2024Q4

REPORT INFORMATION
  Report Type: Spontaneous
  Country: JP (occurrence: JP)
  Receive Date: 20241121
  Receipt Date: 20241121
  Transmission Date: 20250115
  Serious: Yes (Hospitalization)
  Sender: ALEXION PHARMACEUTICALS
  Company Number: JP-ASTRAZENECA-240116327_012620_P_1

PATIENT
  Age: 6 Decade

DRUGS (12)
  1. TRUQAP [Suspect]
     Active Substance: CAPIVASERTIB
     Indication: Breast cancer
     Dosage: DOSE UNKNOWN, ON A 4-DAYS-ON, 3-DAYS-OFF SCHEDULE
  2. TRUQAP [Suspect]
     Active Substance: CAPIVASERTIB
     Dosage: DOSE UNKNOWN, ON A 4-DAYS-ON, 3-DAYS-OFF SCHEDULE
  3. TRUQAP [Suspect]
     Active Substance: CAPIVASERTIB
     Dosage: DOSE UNKNOWN, ON A 4-DAYS-ON, 3-DAYS-OFF SCHEDULE
  4. TRUQAP [Suspect]
     Active Substance: CAPIVASERTIB
     Dosage: DOSE UNKNOWN, ON A 4-DAYS-ON, 3-DAYS-OFF SCHEDULE
  5. FULVESTRANT [Suspect]
     Active Substance: FULVESTRANT
     Indication: Breast cancer
     Dosage: DOSE UNKNOWN
  6. FULVESTRANT [Suspect]
     Active Substance: FULVESTRANT
     Dosage: DOSE UNKNOWN
  7. FULVESTRANT [Suspect]
     Active Substance: FULVESTRANT
     Dosage: DOSE UNKNOWN
  8. FULVESTRANT [Suspect]
     Active Substance: FULVESTRANT
     Dosage: DOSE UNKNOWN
  9. FULVESTRANT [Suspect]
     Active Substance: FULVESTRANT
     Dosage: DOSE UNKNOWN
  10. FULVESTRANT [Suspect]
     Active Substance: FULVESTRANT
     Dosage: DOSE UNKNOWN
  11. FULVESTRANT [Suspect]
     Active Substance: FULVESTRANT
     Dosage: DOSE UNKNOWN
  12. FULVESTRANT [Suspect]
     Active Substance: FULVESTRANT
     Dosage: DOSE UNKNOWN

REACTIONS (2)
  - Rash [Unknown]
  - Sleep disorder due to a general medical condition [Unknown]
